FAERS Safety Report 8922785 (Version 1)
Quarter: 2012Q4

REPORT INFORMATION
  Report Type: Report from Study
  Country: CA (occurrence: CA)
  Receive Date: 20121123
  Receipt Date: 20121123
  Transmission Date: 20130627
  Serious: Yes (Other)
  Sender: FDA-Public Use
  Company Number: CA-JNJFOC-20121107848

PATIENT
  Sex: Female
  Weight: 52.2 kg

DRUGS (9)
  1. REMICADE [Suspect]
     Indication: CROHN^S DISEASE
     Route: 042
  2. PARIET [Concomitant]
     Route: 065
  3. BUSCOPAN [Concomitant]
     Route: 065
  4. ZOPICLONE [Concomitant]
     Route: 065
  5. LORAZEPAM [Concomitant]
     Route: 065
  6. ATENOLOL [Concomitant]
     Route: 065
  7. ACETYL SALICYLIC ACID [Concomitant]
     Route: 065
  8. IMURAN [Concomitant]
     Route: 065
  9. TYLENOL 3 [Concomitant]
     Route: 065

REACTIONS (4)
  - Gastrointestinal endoscopic therapy [Recovering/Resolving]
  - Diarrhoea [Recovering/Resolving]
  - Haemoglobin decreased [Recovering/Resolving]
  - Anorectal discomfort [Recovering/Resolving]
